FAERS Safety Report 13659323 (Version 1)
Quarter: 2017Q2

REPORT INFORMATION
  Report Type: Spontaneous
  Country: US (occurrence: US)
  Receive Date: 20170616
  Receipt Date: 20170616
  Transmission Date: 20170830
  Serious: No
  Sender: FDA-Public Use
  Company Number: US-BAYER-2017-115079

PATIENT
  Sex: Female

DRUGS (2)
  1. SUNSCREEN [Suspect]
     Active Substance: HOMOSALATE\OCTINOXATE\OCTISALATE\OXYBENZONE\TITANIUM DIOXIDE
     Dosage: UNK
  2. FINACEA [Suspect]
     Active Substance: AZELAIC ACID
     Indication: ACNE
     Dosage: UNK

REACTIONS (1)
  - Acne [Unknown]
